FAERS Safety Report 6062647-9 (Version None)
Quarter: 2009Q1

REPORT INFORMATION
  Report Type: 
  Country: None (occurrence: None)
  Receive Date: 20090203
  Receipt Date: 20090127
  Transmission Date: 20090719
  Serious: Yes (Other)
  Sender: FDA-Public Use
  Company Number: US-ASTRAZENECA-2009UW02472

PATIENT
  Age: 38 Year
  Sex: Male

DRUGS (4)
  1. CRESTOR [Suspect]
     Route: 048
  2. NEXIUM [Concomitant]
     Route: 048
  3. SYMBICORT [Concomitant]
     Route: 055
  4. DICLOFENAC [Concomitant]

REACTIONS (1)
  - MYOCARDIAL INFARCTION [None]
